FAERS Safety Report 7889865-9 (Version None)
Quarter: 2011Q4

REPORT INFORMATION
  Report Type: 
  Country: None (occurrence: None)
  Receive Date: 20111103
  Receipt Date: 20111101
  Transmission Date: 20120403
  Serious: Yes (Life-Threatening, Disabling)
  Sender: FDA-Public Use
  Company Number: US-GLAXOSMITHKLINE-A0951793A

PATIENT
  Age: 70 Year
  Sex: Male

DRUGS (11)
  1. LEVOXYL [Concomitant]
  2. FENTANYL-100 [Concomitant]
  3. PLAVIX [Concomitant]
  4. LOVASTATIN [Concomitant]
  5. LANTUS [Concomitant]
  6. VOTRIENT [Suspect]
     Indication: RENAL CANCER METASTATIC
     Dosage: 800MG PER DAY
     Route: 048
     Dates: start: 20110330, end: 20111031
  7. COMPAZINE [Concomitant]
  8. TYLENOL-500 [Concomitant]
  9. ASPIRIN [Concomitant]
  10. CO Q10 [Concomitant]
  11. XANAX [Concomitant]

REACTIONS (2)
  - RENAL CANCER [None]
  - DRUG INEFFECTIVE [None]
